FAERS Safety Report 10405168 (Version 1)
Quarter: 2014Q3

REPORT INFORMATION
  Report Type: Spontaneous
  Country: US (occurrence: US)
  Receive Date: 20140825
  Receipt Date: 20140825
  Transmission Date: 20150326
  Serious: No
  Sender: FDA-Public Use
  Company Number: US-DRREDDYS-USA/USA/14/0041528

PATIENT
  Age: 40 Year
  Sex: Female

DRUGS (1)
  1. SUMATRIPTAN INJECTION USP, 6 MG/0.5 ML [Suspect]
     Active Substance: SUMATRIPTAN
     Indication: MIGRAINE
     Dosage: TO USE 1 INJECTION SUBCUTANEOUSLY AND REPEAT IN 1 HOUR IF HEADACHE RETURNS, NOT MORE THAN 12 MG IN 2
     Route: 058
     Dates: start: 20140629

REACTIONS (2)
  - Drug dose omission [Unknown]
  - Product quality issue [Unknown]

NARRATIVE: CASE EVENT DATE: 20140629
